FAERS Safety Report 13597240 (Version 1)
Quarter: 2017Q2

REPORT INFORMATION
  Report Type: Spontaneous
  Country: IT (occurrence: IT)
  Receive Date: 20170531
  Receipt Date: 20170531
  Transmission Date: 20170830
  Serious: Yes (Hospitalization, Other)
  Sender: FDA-Public Use
  Company Number: IT-GLAXOSMITHKLINE-IT2017GSK080345

PATIENT
  Age: 71 Year
  Sex: Male

DRUGS (3)
  1. VOLTAREN [Suspect]
     Active Substance: DICLOFENAC SODIUM
     Indication: PAIN
     Dosage: UNK
     Route: 048
     Dates: start: 20160716, end: 20160718
  2. BENTELAN (BETAMETHASONE SODIUM PHOSPHATE) [Suspect]
     Active Substance: BETAMETHASONE SODIUM PHOSPHATE
     Indication: PAIN
     Dosage: UNK
     Dates: start: 20160716, end: 20160718
  3. DEURSIL [Concomitant]
     Active Substance: URSODIOL

REACTIONS (5)
  - Abdominal pain upper [Unknown]
  - Haematemesis [Unknown]
  - Nausea [Unknown]
  - Gastric disorder [Unknown]
  - Vomiting [Unknown]

NARRATIVE: CASE EVENT DATE: 20160717
